FAERS Safety Report 7892808-5 (Version None)
Quarter: 2011Q4

REPORT INFORMATION
  Report Type: 
  Country: None (occurrence: None)
  Receive Date: 20111104
  Receipt Date: 20111028
  Transmission Date: 20120403
  Serious: Yes (Life-Threatening, Hospitalization)
  Sender: FDA-Public Use
  Company Number: CN-BAYER-201021637GPV

PATIENT
  Age: 50 Year
  Sex: Male
  Weight: 51 kg

DRUGS (22)
  1. SORAFENIB (RAF KINASE INHIBITOR) [Suspect]
     Route: 048
     Dates: start: 20100501, end: 20100519
  2. AMINO ACIDS [Concomitant]
     Indication: PROPHYLAXIS
     Dosage: IV GTT
     Route: 042
     Dates: start: 20100316, end: 20100316
  3. SORAFENIB (RAF KINASE INHIBITOR) [Suspect]
     Route: 048
     Dates: start: 20100520
  4. SORAFENIB (RAF KINASE INHIBITOR) [Suspect]
     Dosage: UNK
     Dates: start: 20100420, end: 20100430
  5. FLOXACILLIN SODIUM [Concomitant]
     Indication: INFECTION PROPHYLAXIS
     Dosage: 4.0 G (DAILY DOSE), , INTRAVENOUS
     Route: 042
     Dates: start: 20100330, end: 20100401
  6. TIOPRONIN [Concomitant]
     Dosage: 0.4 G (DAILY DOSE), , INTRAVENOUS
     Route: 042
     Dates: start: 20100316, end: 20100325
  7. TIOPRONIN [Concomitant]
     Dosage: IV GTT
     Route: 042
     Dates: start: 20100521, end: 20100521
  8. AMINO ACIDS [Concomitant]
     Indication: SUPPLEMENTATION THERAPY
     Dosage: 250 ML (DAILY DOSE), , INTRAVENOUS
     Route: 042
     Dates: start: 20100316, end: 20100325
  9. GLUTAMINE [Concomitant]
     Indication: SUPPLEMENTATION THERAPY
     Dosage: 10 G (DAILY DOSE), , INTRAVENOUS
     Route: 042
     Dates: start: 20100316, end: 20100325
  10. LEVOFLOXACIN [Concomitant]
     Indication: INFECTION PROPHYLAXIS
     Dosage: 200 ML (DAILY DOSE), , INTRAVENOUS
     Route: 042
     Dates: start: 20100408
  11. MONTMORILLONITE [Concomitant]
     Indication: DIARRHOEA
     Dosage: 9.0 G (DAILY DOSE), ,
     Dates: start: 20100413, end: 20100416
  12. TIOPRONIN [Concomitant]
     Indication: HEPATIC FUNCTION ABNORMAL
     Dosage: IV GTT
     Route: 042
     Dates: start: 20100330, end: 20100405
  13. SORAFENIB (RAF KINASE INHIBITOR) [Suspect]
     Indication: HEPATIC NEOPLASM MALIGNANT
     Route: 048
     Dates: start: 20100226
  14. TIOPRONIN [Concomitant]
     Dosage: 0.4 G (DAILY DOSE), , INTRAVENOUS
     Dates: start: 20100330, end: 20100331
  15. UREA [Concomitant]
     Indication: PALMAR-PLANTAR ERYTHRODYSAESTHESIA SYNDROME
     Dosage: 0.5 G (DAILY DOSE), ,
     Dates: start: 20100420, end: 20100501
  16. PHOSPHATIDYL CHOLINE [Concomitant]
     Indication: HEPATIC FUNCTION ABNORMAL
     Dosage: 697.5 MG (DAILY DOSE), , INTRAVENOUS
     Route: 042
     Dates: start: 20100330, end: 20100405
  17. PHOSPHATIDYL CHOLINE [Concomitant]
     Dosage: 697.5 MG (DAILY DOSE), , INTRAVENOUS
     Route: 042
     Dates: start: 20100408, end: 20100416
  18. SORAFENIB (RAF KINASE INHIBITOR) [Suspect]
     Route: 048
     Dates: start: 20100326, end: 20100419
  19. DOXORUBICIN HCL [Suspect]
     Indication: HEPATIC NEOPLASM MALIGNANT
  20. AMINO ACIDS [Concomitant]
     Dosage: IV GTT
     Route: 042
     Dates: start: 20100316, end: 20100316
  21. TROPISETRON HYDROCHLORIDE [Concomitant]
     Indication: PROPHYLAXIS OF NAUSEA AND VOMITING
     Dosage: 100 ML (DAILY DOSE), , INTRAVENOUS
     Route: 042
     Dates: start: 20100330, end: 20100330
  22. VITAMINS NOS [Concomitant]
     Indication: VITAMIN SUPPLEMENTATION
     Dosage: 2 VIALS IVGGT
     Route: 042
     Dates: start: 20100330, end: 20100401

REACTIONS (2)
  - ASPARTATE AMINOTRANSFERASE INCREASED [None]
  - PNEUMONIA [None]
